FAERS Safety Report 8347477-7 (Version None)
Quarter: 2012Q2

REPORT INFORMATION
  Report Type: 
  Country: None (occurrence: None)
  Receive Date: 20120509
  Receipt Date: 20120501
  Transmission Date: 20120825
  Serious: Yes (Hospitalization)
  Sender: FDA-Public Use
  Company Number: US-NOVOPROD-344637

PATIENT
  Age: 44 Year
  Sex: Male
  Weight: 121.54 kg

DRUGS (4)
  1. SIMVASTATIN [Concomitant]
     Indication: PRODUCT USED FOR UNKNOWN INDICATION
     Dosage: 10 MG, QD AT BEDTIME
     Dates: start: 20111101
  2. MOTRIN [Concomitant]
     Indication: PAIN
     Dosage: 800 MG, QH6 PRN
     Route: 048
     Dates: start: 20111101
  3. VICTOZA [Suspect]
     Indication: TYPE 2 DIABETES MELLITUS
     Dosage: 1.2 MG, QD
     Route: 058
     Dates: start: 20111101, end: 20120127
  4. METFORMIN HCL [Concomitant]
     Indication: TYPE 2 DIABETES MELLITUS
     Dosage: 1000 MG, BID
     Route: 048
     Dates: start: 20111101

REACTIONS (3)
  - URINARY TRACT INFECTION [None]
  - NAUSEA [None]
  - PANCREATITIS [None]
